FAERS Safety Report 12482165 (Version 4)
Quarter: 2016Q4

REPORT INFORMATION
  Report Type: Spontaneous
  Country: JP (occurrence: JP)
  Receive Date: 20160620
  Receipt Date: 20161031
  Transmission Date: 20170207
  Serious: Yes (Other)
  Sender: FDA-Public Use
  Company Number: PHJP2016JP016802

PATIENT
  Age: 41 Year
  Sex: Female
  Weight: 43 kg

DRUGS (3)
  1. AFINITOR [Suspect]
     Active Substance: EVEROLIMUS
     Dosage: 5 MG, QD
     Route: 048
     Dates: start: 20140522, end: 20140803
  2. SANDOSTATINA LAR IM INJECTION [Suspect]
     Active Substance: OCTREOTIDE ACETATE
     Indication: PANCREATIC NEUROENDOCRINE TUMOUR
     Dosage: 30 MG, QMO
     Route: 030
     Dates: start: 20120105
  3. AFINITOR [Suspect]
     Active Substance: EVEROLIMUS
     Indication: PANCREATIC NEUROENDOCRINE TUMOUR
     Dosage: 5 MG, BID
     Route: 048
     Dates: start: 20140204, end: 20140508

REACTIONS (4)
  - Dysphagia [Unknown]
  - Metastases to liver [Recovering/Resolving]
  - Stomatitis [Recovering/Resolving]
  - Malignant neoplasm progression [Recovering/Resolving]

NARRATIVE: CASE EVENT DATE: 20140121
